FAERS Safety Report 24593126 (Version 1)
Quarter: 2024Q4

REPORT INFORMATION
  Report Type: Spontaneous
  Country: US (occurrence: None)
  Receive Date: 20241107
  Receipt Date: 20241107
  Transmission Date: 20250115
  Serious: No
  Sender: Public
  Company Number: None

PATIENT
  Age: 27 Year
  Sex: Female
  Weight: 134 kg

DRUGS (2)
  1. IOHEXOL [Suspect]
     Active Substance: IOHEXOL
     Indication: Scan with contrast
     Dosage: OTHER FREQUENCY : ONCE;?
     Route: 042
     Dates: start: 20240828, end: 20240828
  2. IOHEXOL [Suspect]
     Active Substance: IOHEXOL
     Indication: Computerised tomogram

REACTIONS (9)
  - Chest discomfort [None]
  - Eye pruritus [None]
  - Pruritus [None]
  - Rash [None]
  - Ocular hyperaemia [None]
  - Swelling face [None]
  - Contrast media reaction [None]
  - Periorbital swelling [None]
  - Urticaria [None]

NARRATIVE: CASE EVENT DATE: 20240828
